FAERS Safety Report 11908591 (Version 3)
Quarter: 2016Q2

REPORT INFORMATION
  Report Type: Spontaneous
  Country: BR (occurrence: BR)
  Receive Date: 20160111
  Receipt Date: 20160411
  Transmission Date: 20160815
  Serious: Yes (Other)
  Sender: FDA-Public Use
  Company Number: BR-PFIZER INC-2015239132

PATIENT
  Age: 55 Year
  Sex: Male
  Weight: 80 kg

DRUGS (6)
  1. SUTENT [Suspect]
     Active Substance: SUNITINIB MALATE
     Dosage: 50 MG, 1 CAPSULE PER DAY, CYCLIC (2X2 AND ALSO 4 PER 2)
     Route: 048
     Dates: start: 201507
  2. AMLODIPINE [Concomitant]
     Active Substance: AMLODIPINE BESYLATE
     Indication: BLOOD PRESSURE MEASUREMENT
     Dosage: 10 MG, AT NIGHT
  3. LOSARTAN. [Concomitant]
     Active Substance: LOSARTAN
     Indication: BLOOD PRESSURE MEASUREMENT
     Dosage: 50 MG, 2X/DAY (MORNING AND AFTERNOON)
     Dates: start: 2015
  4. HYDROCHLOROTHIAZIDE. [Concomitant]
     Active Substance: HYDROCHLOROTHIAZIDE
     Indication: BLOOD PRESSURE MEASUREMENT
     Dosage: 25 MG, 2X/DAY (MORNING AND AFTERNOON)
     Dates: start: 2015
  5. HIDANTAL [Concomitant]
     Active Substance: PHENYTOIN SODIUM
     Indication: SEIZURE
     Dosage: UNK
  6. SUTENT [Suspect]
     Active Substance: SUNITINIB MALATE
     Indication: METASTATIC RENAL CELL CARCINOMA
     Dosage: 50 MG, CYCLE 4 PER 2 (TAKE 28 DAYS AND STOP 14 DAYS)
     Route: 048
     Dates: start: 201307

REACTIONS (31)
  - Pain in extremity [Unknown]
  - Mouth swelling [Not Recovered/Not Resolved]
  - Muscular weakness [Unknown]
  - Bone pain [Unknown]
  - Oral mucosal eruption [Not Recovered/Not Resolved]
  - Scab [Unknown]
  - Rash macular [Unknown]
  - Gingival swelling [Not Recovered/Not Resolved]
  - Blood pressure decreased [Not Recovered/Not Resolved]
  - Somnolence [Not Recovered/Not Resolved]
  - Mouth haemorrhage [Recovering/Resolving]
  - Furuncle [Recovering/Resolving]
  - Feeding disorder [Not Recovered/Not Resolved]
  - Oral disorder [Not Recovered/Not Resolved]
  - Mouth ulceration [Recovering/Resolving]
  - Wound [Not Recovered/Not Resolved]
  - Fatigue [Not Recovered/Not Resolved]
  - Limb injury [Not Recovered/Not Resolved]
  - Multiple injuries [Unknown]
  - Dizziness [Recovered/Resolved]
  - Oral pain [Not Recovered/Not Resolved]
  - Loose tooth [Not Recovered/Not Resolved]
  - Swelling face [Unknown]
  - Blood pressure increased [Unknown]
  - Lymphadenitis bacterial [Not Recovered/Not Resolved]
  - Mouth injury [Recovering/Resolving]
  - Peripheral swelling [Not Recovered/Not Resolved]
  - Sluggishness [Not Recovered/Not Resolved]
  - Nausea [Recovered/Resolved]
  - Abdominal distension [Not Recovered/Not Resolved]
  - Diarrhoea [Not Recovered/Not Resolved]

NARRATIVE: CASE EVENT DATE: 2014
